FAERS Safety Report 5950658-0 (Version None)
Quarter: 2008Q4

REPORT INFORMATION
  Report Type: 
  Country: None (occurrence: None)
  Receive Date: 20081022
  Receipt Date: 20080724
  Transmission Date: 20090506
  Serious: No
  Sender: FDA-Public Use
  Company Number: ALL1-2008-01793

PATIENT
  Age: 47 Year
  Sex: Female

DRUGS (1)
  1. VYVANSE [Suspect]
     Dosage: TWO 30 MG. CAPSULES DAILY, ORAL
     Route: 048
     Dates: start: 20080601

REACTIONS (4)
  - AGITATION [None]
  - INSOMNIA [None]
  - MYDRIASIS [None]
  - PSYCHOMOTOR HYPERACTIVITY [None]
